FAERS Safety Report 24529373 (Version 1)
Quarter: 2024Q4

REPORT INFORMATION
  Report Type: Spontaneous
  Country: US (occurrence: US)
  Receive Date: 20241021
  Receipt Date: 20241021
  Transmission Date: 20250115
  Serious: Yes (Other)
  Sender: REGENERON
  Company Number: US-MMM-PSP-BNAQ6FG2

PATIENT
  Age: 86 Year
  Sex: Female

DRUGS (1)
  1. EYLEA HD [Suspect]
     Active Substance: AFLIBERCEPT
     Indication: Product used for unknown indication
     Dosage: UNK; MONTHLY (Q4); FORMULATION: HD (VIAL)
     Dates: start: 2024

REACTIONS (3)
  - Intracranial pressure increased [Unknown]
  - Subretinal hyperreflective exudation [Unknown]
  - Inappropriate schedule of product administration [Unknown]

NARRATIVE: CASE EVENT DATE: 20240101
